FAERS Safety Report 9187888 (Version 1)
Quarter: 2013Q1

REPORT INFORMATION
  Report Type: Spontaneous
  Country: US (occurrence: US)
  Receive Date: 20130325
  Receipt Date: 20130325
  Transmission Date: 20140127
  Serious: No
  Sender: FDA-Public Use
  Company Number: US-MYLANLABS-2012S1015638

PATIENT
  Age: 56 Year
  Sex: Male

DRUGS (3)
  1. FENTANYL TRANSDERMAL SYSTEM [Suspect]
     Indication: BACK PAIN
     Dosage: CHANGED Q72H
     Route: 062
     Dates: start: 201202, end: 201207
  2. FENTANYL TRANSDERMAL SYSTEM [Suspect]
     Indication: BACK PAIN
     Dosage: Q72H
     Route: 062
     Dates: start: 201207
  3. VALIUM [Concomitant]
     Indication: INSOMNIA

REACTIONS (2)
  - Drug withdrawal syndrome [Recovered/Resolved]
  - Muscle spasms [Recovered/Resolved]
